FAERS Safety Report 4885331-3 (Version None)
Quarter: 2006Q1

REPORT INFORMATION
  Report Type: 
  Country: None (occurrence: None)
  Receive Date: 20060119
  Receipt Date: 20060117
  Transmission Date: 20060701
  Serious: Yes (Life-Threatening)
  Sender: FDA-Public Use
  Company Number: 2006UW00791

PATIENT
  Sex: Male

DRUGS (2)
  1. SEROQUEL [Suspect]
     Route: 048
     Dates: start: 20030501, end: 20031201
  2. ZYPREXA [Suspect]
     Dates: start: 20020501, end: 20030601

REACTIONS (3)
  - DIABETES MELLITUS [None]
  - DIABETIC COMPLICATION [None]
  - ILL-DEFINED DISORDER [None]
